FAERS Safety Report 15083161 (Version 2)
Quarter: 2018Q3

REPORT INFORMATION
  Report Type: Spontaneous
  Country: US (occurrence: US)
  Receive Date: 20180628
  Receipt Date: 20180927
  Transmission Date: 20181010
  Serious: No
  Sender: FDA-Public Use
  Company Number: US-INDIVIOR LIMITED-INDV-110902-2018

PATIENT
  Age: 44 Year
  Sex: Male

DRUGS (2)
  1. SUBLOCADE [Suspect]
     Active Substance: BUPRENORPHINE
     Indication: DRUG USE DISORDER
     Dosage: 300 MG, QMO
     Route: 058
     Dates: start: 201804, end: 201804
  2. SUBLOCADE [Suspect]
     Active Substance: BUPRENORPHINE
     Dosage: 300 MG, QMO
     Route: 058
     Dates: start: 20180509

REACTIONS (4)
  - Product administered at inappropriate site [Recovered/Resolved]
  - Drug effect incomplete [Unknown]
  - Injection site pain [Recovered/Resolved]
  - Drug withdrawal syndrome [Unknown]

NARRATIVE: CASE EVENT DATE: 2018
